FAERS Safety Report 8416876-7 (Version None)
Quarter: 2012Q2

REPORT INFORMATION
  Report Type: 
  Country: None (occurrence: None)
  Receive Date: 20120606
  Receipt Date: 20120524
  Transmission Date: 20120825
  Serious: Yes (Hospitalization)
  Sender: FDA-Public Use
  Company Number: JP-BRISTOL-MYERS SQUIBB COMPANY-16606931

PATIENT
  Age: 68 Year
  Sex: Male
  Weight: 80 kg

DRUGS (11)
  1. CISPLATIN [Suspect]
     Indication: GASTRIC CANCER
     Route: 042
     Dates: start: 20120502
  2. CHLORPROMAZINE [Concomitant]
     Indication: HICCUPS
     Dosage: TAB
     Route: 048
     Dates: start: 20120508
  3. PRIMPERAN TAB [Concomitant]
     Indication: NAUSEA
     Dosage: TAB
     Route: 048
     Dates: start: 20120509
  4. LAXOBERON [Concomitant]
     Indication: CONSTIPATION
     Dosage: SOLUTION
     Route: 048
     Dates: start: 20120505
  5. S-1 [Suspect]
     Indication: GASTRIC CANCER
     Dosage: 3WEEK ON,2 WEEK OFF SCHEDULE
     Route: 048
     Dates: start: 20120423, end: 20120512
  6. SHAKUYAKU-KANZO-TO [Concomitant]
     Indication: HICCUPS
     Dosage: GRANULES
     Route: 048
     Dates: start: 20120511
  7. EMEND [Suspect]
     Indication: ANTIEMETIC SUPPORTIVE CARE
     Dosage: ALSO RECEIVED 80 MG/DAY FROM 03-MAY-2012 UNTIL 04-MAY-2012.
     Dates: start: 20120502
  8. MAGLAX [Concomitant]
     Indication: CONSTIPATION
     Dosage: TAB
     Route: 048
     Dates: start: 20120503
  9. LORAZEPAM [Concomitant]
     Indication: NAUSEA
     Dosage: TAB
     Route: 048
     Dates: start: 20120504, end: 20120508
  10. DECADRON [Suspect]
     Indication: ANTIEMETIC SUPPORTIVE CARE
     Dosage: ALSO RECEIVED DEXAMETHASONE TABLETS 8 MG/D (FROM 03-MAY-2012 UNTIL 06-MAY-2012)
     Route: 042
     Dates: start: 20120502
  11. NIFEDIPINE [Concomitant]
     Dosage: TAB
     Route: 048
     Dates: start: 20030101

REACTIONS (1)
  - GASTRIC ULCER HAEMORRHAGE [None]
